FAERS Safety Report 15558072 (Version 1)
Quarter: 2018Q4

REPORT INFORMATION
  Report Type: Spontaneous
  Country: US (occurrence: US)
  Receive Date: 20181027
  Receipt Date: 20181027
  Transmission Date: 20190205
  Serious: No
  Sender: FDA-Public Use
  Company Number: US-009507513-1810USA010450

PATIENT
  Sex: Female

DRUGS (4)
  1. EMEND [Suspect]
     Active Substance: APREPITANT
     Indication: CROHN^S DISEASE
  2. EMEND [Suspect]
     Active Substance: APREPITANT
     Indication: IMPAIRED GASTRIC EMPTYING
     Dosage: UNK
  3. EMEND [Suspect]
     Active Substance: APREPITANT
     Indication: VOMITING
  4. EMEND [Suspect]
     Active Substance: APREPITANT
     Indication: NAUSEA

REACTIONS (1)
  - Product prescribing error [Unknown]
